FAERS Safety Report 11799400 (Version 2)
Quarter: 2016Q1

REPORT INFORMATION
  Report Type: Report from Study
  Country: US (occurrence: US)
  Receive Date: 20151203
  Receipt Date: 20160125
  Transmission Date: 20160525
  Serious: No
  Sender: FDA-Public Use
  Company Number: US-AMGEN-USASL2015117938

PATIENT
  Age: 62 Year
  Sex: Male

DRUGS (2)
  1. REPATHA [Suspect]
     Active Substance: EVOLOCUMAB
     Indication: HYPERCHOLESTEROLAEMIA
     Dosage: 140 MG, Q2WK
     Route: 065
     Dates: start: 20151106
  2. WELCHOL [Concomitant]
     Active Substance: COLESEVELAM HYDROCHLORIDE
     Dosage: UNK

REACTIONS (11)
  - Piloerection [Unknown]
  - Ear discomfort [Unknown]
  - Influenza like illness [Recovered/Resolved]
  - Malaise [Unknown]
  - Ear pain [Unknown]
  - Pharyngeal erythema [Unknown]
  - Oropharyngeal pain [Unknown]
  - Nasal congestion [Unknown]
  - Throat tightness [Unknown]
  - Fatigue [Unknown]
  - Ear swelling [Unknown]

NARRATIVE: CASE EVENT DATE: 201511
